FAERS Safety Report 7311048-1 (Version None)
Quarter: 2011Q1

REPORT INFORMATION
  Report Type: 
  Country: None (occurrence: None)
  Receive Date: 20110224
  Receipt Date: 20110216
  Transmission Date: 20110831
  Serious: Yes (Hospitalization)
  Sender: FDA-Public Use
  Company Number: GB-PFIZER INC-2007007783

PATIENT
  Age: 60 Year
  Sex: Male

DRUGS (8)
  1. ACETYLSALICYLIC ACID [Concomitant]
     Indication: PROPHYLAXIS
     Dosage: 75 MG, 1X/DAY
     Route: 048
     Dates: start: 20060101
  2. VALSARTAN [Concomitant]
     Indication: HYPERTENSION
     Dosage: 40 MG, 1X/DAY
     Route: 048
     Dates: start: 20060727
  3. NYTOL [Concomitant]
     Indication: INSOMNIA
     Dosage: UNK
     Route: 048
  4. BENDROFLUMETHIAZIDE [Concomitant]
     Indication: HYPERTENSION
     Dosage: 2.5 MG, 1X/DAY
     Route: 048
     Dates: start: 20060727
  5. SUNITINIB MALATE [Suspect]
     Dosage: 37.5 MG, 1X/DAY
     Route: 048
     Dates: start: 20070403
  6. LEVOTHYROXINE [Concomitant]
     Indication: THYROIDECTOMY
     Dosage: 125 UG, 1X/DAY
     Route: 048
     Dates: start: 19980101
  7. SUNITINIB MALATE [Suspect]
     Indication: RENAL CELL CARCINOMA
     Dosage: 50 MG, 1X/DAY
     Route: 048
     Dates: start: 20060824
  8. LANSOPRAZOLE [Concomitant]
     Indication: ABDOMINAL DISCOMFORT
     Dosage: 30 MG, 1X/DAY
     Route: 048
     Dates: start: 20070102

REACTIONS (4)
  - SUBDURAL HAEMATOMA [None]
  - FALL [None]
  - CEREBROVASCULAR ACCIDENT [None]
  - METASTASIS [None]
